FAERS Safety Report 18790513 (Version 11)
Quarter: 2025Q4

REPORT INFORMATION
  Report Type: Spontaneous
  Country: US (occurrence: US)
  Receive Date: 20210126
  Receipt Date: 20251021
  Transmission Date: 20260118
  Serious: Yes (Other)
  Sender: PFIZER
  Company Number: US-PFIZER INC-2021051877

PATIENT
  Age: 74 Year
  Sex: Female

DRUGS (2)
  1. XELJANZ [Suspect]
     Active Substance: TOFACITINIB CITRATE
     Dosage: 5 MG
  2. GABAPENTIN [Concomitant]
     Active Substance: GABAPENTIN
     Dosage: PILL
     Dates: end: 20240226

REACTIONS (8)
  - Macular degeneration [Unknown]
  - Retinal haemorrhage [Unknown]
  - Brain injury [Unknown]
  - Retinal detachment [Unknown]
  - Pain [Unknown]
  - Diplopia [Unknown]
  - Depressed mood [Unknown]
  - Herpes zoster [Unknown]
